FAERS Safety Report 6849034-8 (Version None)
Quarter: 2010Q3

REPORT INFORMATION
  Report Type: 
  Country: None (occurrence: None)
  Receive Date: 20100716
  Receipt Date: 20070925
  Transmission Date: 20110219
  Serious: No
  Sender: FDA-Public Use
  Company Number: US-PFIZER INC-2007081608

PATIENT
  Sex: Male
  Weight: 88.7 kg

DRUGS (4)
  1. CHANTIX [Suspect]
     Indication: SMOKING CESSATION THERAPY
     Dates: start: 20070904, end: 20070924
  2. ZOCOR [Concomitant]
  3. SYNTHROID [Concomitant]
  4. PRINZIDE [Concomitant]

REACTIONS (5)
  - ABDOMINAL DISCOMFORT [None]
  - DISORIENTATION [None]
  - DIZZINESS [None]
  - DYSPEPSIA [None]
  - HEADACHE [None]
